FAERS Safety Report 20470235 (Version 1)
Quarter: 2022Q1

REPORT INFORMATION
  Report Type: Spontaneous
  Country: JP (occurrence: JP)
  Receive Date: 20220214
  Receipt Date: 20220214
  Transmission Date: 20220424
  Serious: Yes (Death)
  Sender: FDA-Public Use
  Company Number: JP-KYOWAKIRIN-2022AKK001311

PATIENT

DRUGS (1)
  1. POTELIGEO [Suspect]
     Active Substance: MOGAMULIZUMAB-KPKC
     Indication: Peripheral T-cell lymphoma unspecified
     Dosage: UNK
     Route: 041

REACTIONS (1)
  - Disease progression [Fatal]
